FAERS Safety Report 7149246-2 (Version None)
Quarter: 2010Q4

REPORT INFORMATION
  Report Type: 
  Country: None (occurrence: None)
  Receive Date: 20101209
  Receipt Date: 20101126
  Transmission Date: 20110411
  Serious: Yes (Hospitalization, Other)
  Sender: FDA-Public Use
  Company Number: GXKR2010PL13469

PATIENT
  Age: 44 Year
  Sex: Female

DRUGS (13)
  1. METHOTREXATE [Suspect]
     Indication: SYSTEMIC LUPUS ERYTHEMATOSUS
     Route: 065
  2. CYCLOSPORINE [Suspect]
     Indication: SYSTEMIC LUPUS ERYTHEMATOSUS
     Route: 065
  3. METHYLPREDNISOLONE (NGX) [Suspect]
     Indication: SYSTEMIC LUPUS ERYTHEMATOSUS
     Dosage: UNK
     Route: 065
  4. METHYLPREDNISOLONE (NGX) [Suspect]
     Dosage: 1MG/KG OF BODY MASS
     Route: 048
  5. METHYLPREDNISOLONE (NGX) [Suspect]
     Dosage: 0.5 G/DAY
     Route: 042
  6. METHYLPREDNISOLONE (NGX) [Suspect]
     Dosage: 1 G/DAY
     Route: 042
  7. METHYLPREDNISOLONE (NGX) [Suspect]
     Dosage: 1 MG/KG OF BODY MASS/DAY
     Route: 048
  8. CYCLOPHOSPHAMIDE [Suspect]
     Indication: IMMUNOSUPPRESSION
     Dosage: 0.6 G/DAY
     Route: 042
  9. CYCLOPHOSPHAMIDE [Suspect]
     Dosage: 0.4 G/DAY
     Route: 042
  10. CYCLOPHOSPHAMIDE [Suspect]
     Dosage: 0.2 G/DAY
     Route: 042
  11. CYCLOPHOSPHAMIDE [Suspect]
     Dosage: 0.1 G/DAY
     Route: 042
  12. CYCLOPHOSPHAMIDE [Suspect]
     Dosage: 100 MG/DAY
     Route: 048
  13. CHLOROQUINE PHOSPHATE [Concomitant]

REACTIONS (12)
  - CHILLS [None]
  - COUGH [None]
  - DYSPNOEA [None]
  - ENDOTRACHEAL INTUBATION [None]
  - HYPOXIA [None]
  - LEUKOPENIA [None]
  - LUPUS PNEUMONITIS [None]
  - MECHANICAL VENTILATION [None]
  - PYREXIA [None]
  - RESPIRATORY FAILURE [None]
  - TACHYCARDIA [None]
  - TACHYPNOEA [None]
